FAERS Safety Report 22741800 (Version 7)
Quarter: 2025Q1

REPORT INFORMATION
  Report Type: Spontaneous
  Country: US (occurrence: US)
  Receive Date: 20230724
  Receipt Date: 20250304
  Transmission Date: 20250409
  Serious: No
  Sender: BIOGEN
  Company Number: US-BIOGEN-2023BI01217287

PATIENT
  Sex: Female

DRUGS (4)
  1. VUMERITY [Suspect]
     Active Substance: DIROXIMEL FUMARATE
     Indication: Multiple sclerosis
     Dosage: TAKE 2 CAPSULES BY MOUTH TWICE A DAY FOR MULTIPLE SCLEROSIS
     Route: 050
  2. VITAMIN C [Concomitant]
     Active Substance: ASCORBIC ACID
     Route: 050
  3. DALFAMPRIDINE [Concomitant]
     Active Substance: DALFAMPRIDINE
     Route: 050
  4. B12 [Concomitant]
     Route: 050

REACTIONS (4)
  - Product dose omission in error [Unknown]
  - Product dose omission issue [Unknown]
  - Drug ineffective [Unknown]
  - Multiple sclerosis [Unknown]
